FAERS Safety Report 20173401 (Version 6)
Quarter: 2022Q1

REPORT INFORMATION
  Report Type: Report from Study
  Country: BR (occurrence: BR)
  Receive Date: 20211211
  Receipt Date: 20220206
  Transmission Date: 20220423
  Serious: Yes (Life-Threatening, Hospitalization, Other)
  Sender: FDA-Public Use
  Company Number: BR-NOVARTISPH-NVSC2021BR281601

PATIENT
  Age: 63 Year
  Sex: Female

DRUGS (7)
  1. KISQALI [Suspect]
     Active Substance: RIBOCICLIB
     Indication: Metastatic neoplasm
     Dosage: 3 DOSAGE FORM, QD (IN 03 DEC 2021)
     Route: 065
     Dates: end: 20211214
  2. KISQALI [Suspect]
     Active Substance: RIBOCICLIB
     Indication: Breast neoplasm
     Dosage: 600 MG, QD
     Route: 048
     Dates: start: 20211204, end: 20211223
  3. LETROZOLE [Suspect]
     Active Substance: LETROZOLE
     Indication: Metastatic neoplasm
     Dosage: UNK (FROM NOV 2021)
     Route: 065
  4. LETROZOLE [Suspect]
     Active Substance: LETROZOLE
     Dosage: 1 UNK, QD
     Route: 048
     Dates: start: 20211119
  5. TAMOXIFEN CITRATE [Suspect]
     Active Substance: TAMOXIFEN CITRATE
     Indication: Breast cancer
     Dosage: UNK
     Route: 065
     Dates: start: 200207, end: 200408
  6. TAMOXIFEN CITRATE [Suspect]
     Active Substance: TAMOXIFEN CITRATE
     Dosage: UNK
     Route: 065
     Dates: start: 201710, end: 202111
  7. AROMASIN [Concomitant]
     Active Substance: EXEMESTANE
     Indication: Product used for unknown indication
     Dosage: UNK
     Route: 065
     Dates: start: 200408

REACTIONS (20)
  - Vomiting [Recovered/Resolved]
  - Near death experience [Unknown]
  - Ill-defined disorder [Unknown]
  - Diarrhoea [Recovered/Resolved]
  - Metastases to bone [Unknown]
  - Metastases to pelvis [Unknown]
  - Eating disorder [Recovered/Resolved]
  - Dyskinesia [Unknown]
  - Pain in extremity [Unknown]
  - Arthralgia [Recovering/Resolving]
  - Dehydration [Unknown]
  - Vision blurred [Unknown]
  - Malaise [Recovering/Resolving]
  - Poor quality sleep [Unknown]
  - Psychomotor hyperactivity [Unknown]
  - Gastrointestinal disorder [Unknown]
  - Pain [Unknown]
  - Asthenia [Recovering/Resolving]
  - Dizziness [Recovering/Resolving]
  - Aptyalism [Unknown]

NARRATIVE: CASE EVENT DATE: 20171001
